FAERS Safety Report 12242687 (Version 1)
Quarter: 2016Q2

REPORT INFORMATION
  Report Type: Spontaneous
  Country: US (occurrence: US)
  Receive Date: 20160406
  Receipt Date: 20160406
  Transmission Date: 20160815
  Serious: No
  Sender: FDA-Public Use
  Company Number: US-BAYER-2016-065435

PATIENT
  Age: 63 Year
  Sex: Female
  Weight: 56.69 kg

DRUGS (1)
  1. CLARITIN-D 24 HOUR [Suspect]
     Active Substance: LORATADINE\PSEUDOEPHEDRINE SULFATE
     Indication: NASOPHARYNGITIS
     Dosage: UNK, UNK, QD
     Dates: start: 20160401, end: 20160404

REACTIONS (2)
  - Nausea [Not Recovered/Not Resolved]
  - Vomiting [None]

NARRATIVE: CASE EVENT DATE: 20160401
